FAERS Safety Report 5922591-1 (Version None)
Quarter: 2008Q4

REPORT INFORMATION
  Report Type: 
  Country: None (occurrence: None)
  Receive Date: 20081017
  Receipt Date: 20081010
  Transmission Date: 20090506
  Serious: Yes (Hospitalization)
  Sender: FDA-Public Use
  Company Number: PHEH2008US09092

PATIENT
  Sex: Male

DRUGS (2)
  1. TEKTURNA [Suspect]
     Dosage: UNK, UNK
  2. DRUG THERAPY NOS [Interacting]
     Dosage: UNK

REACTIONS (2)
  - DRUG INTERACTION [None]
  - GAIT DISTURBANCE [None]
